FAERS Safety Report 4295053-8 (Version None)
Quarter: 2004Q1

REPORT INFORMATION
  Report Type: 
  Country: None (occurrence: None)
  Receive Date: 20040211
  Receipt Date: 20040129
  Transmission Date: 20041129
  Serious: Yes (Hospitalization)
  Sender: FDA-Public Use
  Company Number: 2004AP00566

PATIENT
  Age: 74 Year
  Sex: Female

DRUGS (9)
  1. IRESSA [Suspect]
     Indication: LUNG ADENOCARCINOMA
     Dosage: 250 MG DAILY PO
     Route: 048
     Dates: start: 20031104, end: 20031123
  2. IRESSA [Suspect]
     Indication: NON-SMALL CELL LUNG CANCER
     Dosage: 250 MG DAILY PO
     Route: 048
     Dates: start: 20031104, end: 20031123
  3. CODEINE [Concomitant]
  4. MAGNESIUM OXIDE [Concomitant]
  5. NORVASC [Concomitant]
  6. EUGLUCON [Concomitant]
  7. BASEN [Concomitant]
  8. LIPOVAS ^BANYU^ [Concomitant]
  9. GEMZAR [Concomitant]

REACTIONS (11)
  - ABDOMINAL PAIN [None]
  - ALANINE AMINOTRANSFERASE INCREASED [None]
  - ASPARTATE AMINOTRANSFERASE INCREASED [None]
  - DIARRHOEA [None]
  - ENTEROCOLITIS INFECTIOUS [None]
  - GASTROINTESTINAL HAEMORRHAGE [None]
  - HEPATIC FUNCTION ABNORMAL [None]
  - INFLAMMATION [None]
  - INTESTINAL ISCHAEMIA [None]
  - LIVER DISORDER [None]
  - MELAENA [None]
